FAERS Safety Report 18317407 (Version 2)
Quarter: 2021Q1

REPORT INFORMATION
  Report Type: Report from Study
  Country: None (occurrence: US)
  Receive Date: 20200928
  Receipt Date: 20210118
  Transmission Date: 20210419
  Serious: Yes (Hospitalization)
  Sender: FDA-Public Use
  Company Number: US-INSMED, INC.-US-INS-20-01669

PATIENT
  Age: 67 Year
  Sex: Male

DRUGS (1)
  1. ARIKAYCE [Suspect]
     Active Substance: AMIKACIN
     Indication: MYCOBACTERIUM AVIUM COMPLEX INFECTION
     Route: 055
     Dates: start: 202008, end: 202009

REACTIONS (10)
  - Dysgeusia [Recovering/Resolving]
  - Rhinorrhoea [Not Recovered/Not Resolved]
  - Dysphonia [Not Recovered/Not Resolved]
  - Gait inability [Unknown]
  - Decreased appetite [Recovering/Resolving]
  - Throat irritation [Not Recovered/Not Resolved]
  - Fatigue [Recovering/Resolving]
  - Oxygen saturation decreased [Unknown]
  - Cough [Not Recovered/Not Resolved]
  - Dyspnoea [Not Recovered/Not Resolved]

NARRATIVE: CASE EVENT DATE: 2020
